FAERS Safety Report 24254579 (Version 6)
Quarter: 2024Q4

REPORT INFORMATION
  Report Type: Spontaneous
  Country: IT (occurrence: IT)
  Receive Date: 20240827
  Receipt Date: 20241022
  Transmission Date: 20250115
  Serious: Yes (Hospitalization)
  Sender: NOVARTIS
  Company Number: IT-CHEPLA-2024010315

PATIENT
  Age: 39 Year
  Sex: Male

DRUGS (77)
  1. MYCOPHENOLATE MOFETIL [Suspect]
     Active Substance: MYCOPHENOLATE MOFETIL
     Indication: Product used for unknown indication
     Dosage: 500 MG BID
     Route: 065
  2. MYCOPHENOLATE MOFETIL [Suspect]
     Active Substance: MYCOPHENOLATE MOFETIL
     Dosage: 500 MG BID
     Route: 065
  3. MYCOPHENOLATE MOFETIL [Suspect]
     Active Substance: MYCOPHENOLATE MOFETIL
     Dosage: 500 MG, BID
     Route: 065
  4. VALGANCICLOVIR [Suspect]
     Active Substance: VALGANCICLOVIR
     Indication: Cytomegalovirus infection
     Dosage: UNK
     Route: 048
  5. VALGANCICLOVIR [Suspect]
     Active Substance: VALGANCICLOVIR
     Indication: Metastases to lymph nodes
  6. CEFTAZIDIME [Suspect]
     Active Substance: CEFTAZIDIME
     Indication: Malignant melanoma stage III
     Dosage: 2 G, QD
     Route: 065
  7. CEFTAZIDIME [Suspect]
     Active Substance: CEFTAZIDIME
     Dosage: UNK
     Route: 065
  8. CEFTAZIDIME [Suspect]
     Active Substance: CEFTAZIDIME
     Dosage: 2G QDUNK
     Route: 065
  9. CEFTAZIDIME [Suspect]
     Active Substance: CEFTAZIDIME
     Dosage: UNK
     Route: 065
  10. CEFTAZIDIME [Suspect]
     Active Substance: CEFTAZIDIME
     Dosage: 2G QDUNK
     Route: 065
  11. CEFTAZIDIME [Suspect]
     Active Substance: CEFTAZIDIME
     Dosage: UNK
     Route: 065
  12. CEFTAZIDIME [Suspect]
     Active Substance: CEFTAZIDIME
     Dosage: 2G QDUNK
     Route: 065
  13. DABRAFENIB [Suspect]
     Active Substance: DABRAFENIB
     Indication: Product used for unknown indication
     Dosage: UNK
     Route: 065
  14. DABRAFENIB [Suspect]
     Active Substance: DABRAFENIB
     Dosage: UNK
     Route: 065
  15. TRAMETINIB [Suspect]
     Active Substance: TRAMETINIB
     Indication: Product used for unknown indication
     Dosage: UNK
     Route: 065
  16. TRAMETINIB [Suspect]
     Active Substance: TRAMETINIB
     Dosage: UNK
     Route: 065
  17. ACYCLOVIR [Suspect]
     Active Substance: ACYCLOVIR
     Indication: Product used for unknown indication
     Dosage: 750 MG, TID
     Route: 065
  18. ACYCLOVIR [Suspect]
     Active Substance: ACYCLOVIR
     Dosage: 750 MG, TID
     Route: 065
  19. ENOXAPARIN [Suspect]
     Active Substance: ENOXAPARIN
     Indication: Product used for unknown indication
     Dosage: UNK
     Route: 065
  20. ENOXAPARIN [Suspect]
     Active Substance: ENOXAPARIN
     Dosage: UNK
     Route: 065
  21. URSODIOL [Suspect]
     Active Substance: URSODIOL
     Indication: Porcelain gallbladder
     Dosage: 300MG TIDUNK
     Route: 065
  22. URSODIOL [Suspect]
     Active Substance: URSODIOL
     Dosage: 300 MG, TID
     Route: 065
  23. URSODIOL [Suspect]
     Active Substance: URSODIOL
     Dosage: 300 MG, TID
     Route: 065
  24. URSODIOL [Suspect]
     Active Substance: URSODIOL
     Dosage: 300 MG, TID
     Route: 065
  25. CANRENONE [Suspect]
     Active Substance: CANRENONE
     Indication: Cytomegalovirus infection
     Dosage: 100MG BID
     Route: 065
  26. CANRENONE [Suspect]
     Active Substance: CANRENONE
     Dosage: 100MG BIDUNK
     Route: 065
  27. CANRENONE [Suspect]
     Active Substance: CANRENONE
     Dosage: 100MG BIDUNK
     Route: 065
  28. CANRENONE [Suspect]
     Active Substance: CANRENONE
     Dosage: 100MG BID
     Route: 065
  29. AMPHOTERICIN B [Suspect]
     Active Substance: AMPHOTERICIN B
     Indication: Hypothyroidism
     Dosage: 3 MG/KGUNK
     Route: 065
  30. AMPHOTERICIN B [Suspect]
     Active Substance: AMPHOTERICIN B
     Dosage: 3 MG/KGUNK
     Route: 065
  31. AMPHOTERICIN B [Suspect]
     Active Substance: AMPHOTERICIN B
     Dosage: 3 MG/KG
     Route: 065
  32. NIVOLUMAB [Suspect]
     Active Substance: NIVOLUMAB
     Indication: Intestinal metastasis
     Dosage: UNK
     Route: 065
  33. NIVOLUMAB [Suspect]
     Active Substance: NIVOLUMAB
     Indication: Metastases to lymph nodes
     Dosage: MAINTANANCE THERAPY, 480MG EVERY 4 WEEKS
     Route: 065
     Dates: start: 202210
  34. NIVOLUMAB [Suspect]
     Active Substance: NIVOLUMAB
     Indication: Malignant melanoma stage III
     Dosage: MAINTANANCE THERAPY, 480MG EVERY 4 WEEKSUNK
     Route: 065
     Dates: start: 202210
  35. NIVOLUMAB [Suspect]
     Active Substance: NIVOLUMAB
     Indication: Intestinal metastasis
     Dosage: UNK
     Route: 065
  36. NIVOLUMAB [Suspect]
     Active Substance: NIVOLUMAB
     Dosage: UNK
     Route: 065
  37. NIVOLUMAB [Suspect]
     Active Substance: NIVOLUMAB
     Dosage: MAINTANANCE THERAPY, 480MG EVERY 4 WEEKSUNK
     Route: 065
     Dates: start: 202210
  38. NIVOLUMAB [Suspect]
     Active Substance: NIVOLUMAB
     Dosage: UNK
     Route: 065
  39. NIVOLUMAB [Suspect]
     Active Substance: NIVOLUMAB
     Dosage: MAINTANANCE THERAPY, 480MG EVERY 4 WEEKSUNK
     Route: 065
     Dates: start: 202210
  40. NIVOLUMAB [Suspect]
     Active Substance: NIVOLUMAB
     Route: 065
  41. METHYLPREDNISOLONE [Suspect]
     Active Substance: METHYLPREDNISOLONE
     Indication: Porcelain gallbladder
     Dosage: 1.000MG/KG
     Route: 042
     Dates: start: 2022
  42. METHYLPREDNISOLONE [Suspect]
     Active Substance: METHYLPREDNISOLONE
     Dosage: UNK
     Route: 065
     Dates: start: 2023
  43. METHYLPREDNISOLONE [Suspect]
     Active Substance: METHYLPREDNISOLONE
     Dosage: UNK
     Route: 065
  44. METHYLPREDNISOLONE [Suspect]
     Active Substance: METHYLPREDNISOLONE
     Dosage: UNK
     Route: 065
     Dates: start: 2023
  45. METHYLPREDNISOLONE [Suspect]
     Active Substance: METHYLPREDNISOLONE
     Dosage: UNK
     Route: 065
  46. METHYLPREDNISOLONE [Suspect]
     Active Substance: METHYLPREDNISOLONE
     Dosage: UNK
     Route: 065
     Dates: start: 2023
  47. METHYLPREDNISOLONE [Suspect]
     Active Substance: METHYLPREDNISOLONE
     Dosage: UNK
     Route: 065
  48. METHYLPREDNISOLONE [Suspect]
     Active Substance: METHYLPREDNISOLONE
     Dosage: UNK
     Route: 065
     Dates: start: 2023
  49. METHYLPREDNISOLONE [Suspect]
     Active Substance: METHYLPREDNISOLONE
     Dosage: UNK
     Route: 065
  50. SULFAMETHOXAZOLE\TRIMETHOPRIM [Suspect]
     Active Substance: SULFAMETHOXAZOLE\TRIMETHOPRIM
     Indication: Superficial vein thrombosis
     Dosage: UNK
     Route: 065
  51. FUROSEMIDE [Concomitant]
     Active Substance: FUROSEMIDE
     Indication: Product used for unknown indication
     Dosage: UNK
     Route: 065
     Dates: start: 2022
  52. FUROSEMIDE [Concomitant]
     Active Substance: FUROSEMIDE
     Dosage: UNK
     Route: 065
     Dates: start: 2023
  53. PREDNISONE [Concomitant]
     Active Substance: PREDNISONE
     Indication: Intestinal metastasis
     Dosage: 1.000MG/KG
     Route: 048
  54. EDOXABAN [Concomitant]
     Active Substance: EDOXABAN
     Indication: Superficial vein thrombosis
     Dosage: UNK
     Route: 065
  55. EDOXABAN [Concomitant]
     Active Substance: EDOXABAN
     Dosage: UNK
     Route: 065
  56. EDOXABAN [Concomitant]
     Active Substance: EDOXABAN
     Dosage: UNK
     Route: 065
  57. EDOXABAN [Concomitant]
     Active Substance: EDOXABAN
     Dosage: UNK
     Route: 065
  58. EDOXABAN [Concomitant]
     Active Substance: EDOXABAN
     Dosage: UNK
     Route: 065
  59. EDOXABAN [Concomitant]
     Active Substance: EDOXABAN
     Dosage: UNK
     Route: 065
  60. EDOXABAN [Concomitant]
     Active Substance: EDOXABAN
     Dosage: UNK
     Route: 065
  61. EDOXABAN [Concomitant]
     Active Substance: EDOXABAN
     Dosage: UNK
     Route: 065
  62. EDOXABAN [Concomitant]
     Active Substance: EDOXABAN
     Dosage: UNK
     Route: 065
  63. EDOXABAN [Concomitant]
     Active Substance: EDOXABAN
     Dosage: UNK
     Route: 065
  64. EDOXABAN [Concomitant]
     Active Substance: EDOXABAN
     Dosage: UNK
     Route: 065
  65. EDOXABAN [Concomitant]
     Active Substance: EDOXABAN
     Route: 065
  66. LEVOTHYROXINE [Concomitant]
     Active Substance: LEVOTHYROXINE
     Indication: Hypothyroidism
     Dosage: UNK
     Route: 065
  67. LEVOTHYROXINE [Concomitant]
     Active Substance: LEVOTHYROXINE
     Dosage: UNK
     Route: 065
  68. LEVOTHYROXINE [Concomitant]
     Active Substance: LEVOTHYROXINE
     Dosage: UNK
     Route: 065
  69. LEVOTHYROXINE [Concomitant]
     Active Substance: LEVOTHYROXINE
     Dosage: UNK
     Route: 065
  70. LEVOTHYROXINE [Concomitant]
     Active Substance: LEVOTHYROXINE
     Dosage: UNK
     Route: 065
  71. LEVOTHYROXINE [Concomitant]
     Active Substance: LEVOTHYROXINE
     Dosage: UNK
     Route: 065
  72. LEVOTHYROXINE [Concomitant]
     Active Substance: LEVOTHYROXINE
     Dosage: UNK
     Route: 065
  73. LEVOTHYROXINE [Concomitant]
     Active Substance: LEVOTHYROXINE
     Dosage: UNK
     Route: 065
  74. LEVOTHYROXINE [Concomitant]
     Active Substance: LEVOTHYROXINE
     Dosage: UNK
     Route: 065
  75. LEVOTHYROXINE [Concomitant]
     Active Substance: LEVOTHYROXINE
     Dosage: UNK
     Route: 065
  76. LEVOTHYROXINE [Concomitant]
     Active Substance: LEVOTHYROXINE
     Dosage: UNK
     Route: 065
  77. LEVOTHYROXINE [Concomitant]
     Active Substance: LEVOTHYROXINE
     Route: 065

REACTIONS (12)
  - Diplopia [Unknown]
  - Urinary retention [Unknown]
  - Nervous system disorder [Unknown]
  - Hypoacusis [Unknown]
  - Disease recurrence [Unknown]
  - Varicella virus test positive [Unknown]
  - Pseudomonas test positive [Unknown]
  - Hypotension [Unknown]
  - Anaemia [Unknown]
  - Varicella zoster virus infection [Unknown]
  - Pseudomonas infection [Unknown]
  - Off label use [Unknown]
